FAERS Safety Report 15163461 (Version 2)
Quarter: 2018Q3

REPORT INFORMATION
  Report Type: Spontaneous
  Country: PT (occurrence: PT)
  Receive Date: 20180719
  Receipt Date: 20180803
  Transmission Date: 20181010
  Serious: Yes (Other)
  Sender: FDA-Public Use
  Company Number: PT-009507513-1807PRT007105

PATIENT
  Age: 9 Year
  Sex: Male

DRUGS (2)
  1. SINGULAIR [Suspect]
     Active Substance: MONTELUKAST SODIUM
     Indication: ASTHMA
     Dosage: AT NIGHT
     Dates: start: 20180628, end: 20180630
  2. SYMBICORT [Suspect]
     Active Substance: BUDESONIDE\FORMOTEROL FUMARATE DIHYDRATE
     Indication: ASTHMA
     Dosage: 329 MICROGRAM, QD, WASHED THE MOUTH AFTER EACH INHALATION
     Dates: start: 20180628, end: 20180630

REACTIONS (5)
  - Diarrhoea [Recovering/Resolving]
  - Oral viral infection [Recovering/Resolving]
  - Off label use [Unknown]
  - Odynophagia [Recovering/Resolving]
  - Oedema mouth [Recovering/Resolving]

NARRATIVE: CASE EVENT DATE: 20180630
